FAERS Safety Report 22330429 (Version 2)
Quarter: 2023Q2

REPORT INFORMATION
  Report Type: Spontaneous
  Country: BR (occurrence: BR)
  Receive Date: 20230517
  Receipt Date: 20230529
  Transmission Date: 20230722
  Serious: Yes (Other)
  Sender: FDA-Public Use
  Company Number: BR-UCBSA-2023024991

PATIENT
  Age: 2 Year
  Sex: Male

DRUGS (4)
  1. VIMPAT [Suspect]
     Active Substance: LACOSAMIDE
     Indication: Epilepsy
     Dosage: 2 MILLILITER, 2X/DAY (BID)
     Route: 048
     Dates: start: 20230224
  2. KEPPRA [Suspect]
     Active Substance: LEVETIRACETAM
     Indication: Epilepsy
     Dosage: 3 MILLILITER, 2X/DAY (BID) MORNING AND EVENING
     Route: 048
     Dates: start: 2022
  3. PHENOBARBITAL [Suspect]
     Active Substance: PHENOBARBITAL
     Indication: Epilepsy
     Dosage: 15 DROP, 2X/DAY (BID) MORNING AND EVENING
     Route: 048
     Dates: start: 202212
  4. CANNABIDIOL [Suspect]
     Active Substance: CANNABIDIOL
     Indication: Epilepsy
     Dosage: 0.5 MILLILITER, 2X/DAY (BID)
     Route: 048
     Dates: start: 202303

REACTIONS (4)
  - Cerebral palsy [Unknown]
  - Abdominal discomfort [Not Recovered/Not Resolved]
  - Flatulence [Not Recovered/Not Resolved]
  - Off label use [Unknown]

NARRATIVE: CASE EVENT DATE: 20230324
